FAERS Safety Report 24524560 (Version 1)
Quarter: 2024Q4

REPORT INFORMATION
  Report Type: Spontaneous
  Country: US (occurrence: US)
  Receive Date: 20241019
  Receipt Date: 20241019
  Transmission Date: 20250114
  Serious: No
  Sender: SANDOZ
  Company Number: US-002147023-NVSC2023US281452

PATIENT
  Sex: Female

DRUGS (2)
  1. DIFLUPREDNATE [Suspect]
     Active Substance: DIFLUPREDNATE
     Indication: Corneal transplant
     Dosage: UNK
     Route: 047
  2. DUREZOL [Suspect]
     Active Substance: DIFLUPREDNATE
     Indication: Corneal transplant
     Dosage: 1 DRP, QD
     Route: 047

REACTIONS (5)
  - Eye swelling [Unknown]
  - Swelling face [Unknown]
  - Urticaria [Unknown]
  - Drug hypersensitivity [Unknown]
  - Headache [Unknown]
